FAERS Safety Report 5073088-5 (Version None)
Quarter: 2006Q3

REPORT INFORMATION
  Report Type: 
  Country: None (occurrence: None)
  Receive Date: 20060802
  Receipt Date: 20060719
  Transmission Date: 20061208
  Serious: Yes (Hospitalization)
  Sender: FDA-Public Use
  Company Number: 2006PV017866

PATIENT
  Age: 70 Year
  Sex: Male

DRUGS (1)
  1. BYETTA [Suspect]
     Indication: DRUG USE FOR UNKNOWN INDICATION
     Dosage: 10 MCG SC ; 10 MCG SC ; 5 MCG SC
     Route: 058
     Dates: end: 20060101

REACTIONS (6)
  - BLOOD PRESSURE DECREASED [None]
  - CARDIAC DISORDER [None]
  - HEART RATE INCREASED [None]
  - MALAISE [None]
  - PERICARDIAL EFFUSION [None]
  - RESPIRATORY DISORDER [None]
